FAERS Safety Report 16995934 (Version 1)
Quarter: 2019Q4

REPORT INFORMATION
  Report Type: Report from Study
  Country: IT (occurrence: IT)
  Receive Date: 20191105
  Receipt Date: 20191105
  Transmission Date: 20200122
  Serious: Yes (Other)
  Sender: FDA-Public Use
  Company Number: IT-PFIZER INC-2019471647

PATIENT
  Age: 65 Year
  Sex: Male

DRUGS (4)
  1. DEPAKIN CHRONO [VALPROATE SODIUM;VALPROIC ACID] [Interacting]
     Active Substance: VALPROIC ACID
     Indication: IRRITABILITY
     Dosage: 300 MG, 1X/DAY
     Route: 048
     Dates: start: 20190811, end: 20190811
  2. QUETIAPINA AUROBINDO [Concomitant]
     Active Substance: QUETIAPINE FUMARATE
     Dosage: 25 MG, UNK
     Route: 048
  3. LAMOTRIGINE. [Interacting]
     Active Substance: LAMOTRIGINE
     Indication: IRRITABILITY
     Dosage: 25 MG, 1X/DAY
     Route: 048
     Dates: start: 20190801, end: 20190811
  4. XANAX [Suspect]
     Active Substance: ALPRAZOLAM
     Indication: IRRITABILITY
     Dosage: 1 MG, 1X/DAY
     Route: 048
     Dates: start: 20170801, end: 20190811

REACTIONS (3)
  - Urinary incontinence [Recovering/Resolving]
  - Sopor [Recovering/Resolving]
  - Drug interaction [Recovering/Resolving]

NARRATIVE: CASE EVENT DATE: 20190811
